FAERS Safety Report 4460835-6 (Version None)
Quarter: 2004Q3

REPORT INFORMATION
  Report Type: 
  Country: None (occurrence: None)
  Receive Date: 20040928
  Receipt Date: 20040812
  Transmission Date: 20050211
  Serious: No
  Sender: FDA-Public Use
  Company Number: US-GLAXOSMITHKLINE-A0521952A

PATIENT
  Sex: Female

DRUGS (3)
  1. ADVAIR DISKUS 100/50 [Suspect]
     Indication: ILL-DEFINED DISORDER
     Route: 055
  2. PREDNISONE [Concomitant]
  3. ALBUTEROL [Concomitant]

REACTIONS (3)
  - ASTHENIA [None]
  - DEPRESSION [None]
  - WHEEZING [None]
